FAERS Safety Report 7730470-2 (Version None)
Quarter: 2011Q3

REPORT INFORMATION
  Report Type: 
  Country: None (occurrence: None)
  Receive Date: 20110906
  Receipt Date: 20110830
  Transmission Date: 20111222
  Serious: Yes (Other)
  Sender: FDA-Public Use
  Company Number: CH-PFIZER INC-2011203972

PATIENT
  Age: 24 Year
  Sex: Male

DRUGS (11)
  1. CYTARABINE [Suspect]
     Indication: ACUTE MYELOID LEUKAEMIA
     Dosage: UNK
  2. CYTARABINE [Suspect]
     Dosage: UNK
     Dates: start: 20110406
  3. CYTARABINE [Suspect]
     Dosage: UNK
     Dates: start: 20110502
  4. VESANOID [Suspect]
     Indication: ACUTE MYELOID LEUKAEMIA
  5. IDARUBICIN HCL [Suspect]
     Dosage: UNK
     Dates: start: 20110502
  6. IDARUBICIN HCL [Suspect]
     Dosage: UNK
     Dates: start: 20110303
  7. CYTARABINE [Suspect]
     Dosage: UNK
     Dates: start: 20110303
  8. IDARUBICIN HCL [Suspect]
     Dosage: UNK
     Dates: start: 20110406
  9. VORICONAZOLE [Concomitant]
     Indication: ANTIFUNGAL PROPHYLAXIS
     Dosage: 200 MG, 2X/DAY
  10. IDARUBICIN HCL [Suspect]
     Indication: ACUTE MYELOID LEUKAEMIA
     Dosage: UNK
  11. CASPOFUNGIN [Concomitant]
     Indication: ANTIFUNGAL PROPHYLAXIS

REACTIONS (2)
  - FEBRILE NEUTROPENIA [None]
  - RETINOIC ACID SYNDROME [None]
